FAERS Safety Report 8312874-2 (Version None)
Quarter: 2012Q2

REPORT INFORMATION
  Report Type: 
  Country: None (occurrence: None)
  Receive Date: 20120426
  Receipt Date: 20120419
  Transmission Date: 20120825
  Serious: No
  Sender: FDA-Public Use
  Company Number: US-PFIZER INC-2012099630

PATIENT
  Sex: Male
  Weight: 69 kg

DRUGS (6)
  1. SUTENT [Suspect]
     Dosage: 12.5 MG, DAILY
     Dates: start: 20120101
  2. MULTI-VITAMINS [Concomitant]
     Dosage: UNK
  3. VITAMIN B6 [Concomitant]
     Dosage: UNK
  4. ACETYLSALICYLIC ACID [Concomitant]
     Dosage: 81 MG, DAILY
  5. DIOVAN [Concomitant]
     Indication: BLOOD PRESSURE
     Dosage: 320 MG, DAILY
  6. SUTENT [Suspect]
     Dosage: 37.5 MG, (12.5 MG, 3 CAPSULES)
     Dates: start: 20110805

REACTIONS (7)
  - DECREASED APPETITE [None]
  - DIARRHOEA [None]
  - BLOOD PRESSURE FLUCTUATION [None]
  - WEIGHT DECREASED [None]
  - DYSGEUSIA [None]
  - VOMITING [None]
  - NAUSEA [None]
